FAERS Safety Report 4382022-2 (Version None)
Quarter: 2004Q2

REPORT INFORMATION
  Report Type: 
  Country: None (occurrence: None)
  Receive Date: 20040603
  Receipt Date: 20030508
  Transmission Date: 20050107
  Serious: Yes (Hospitalization, Other)
  Sender: FDA-Public Use
  Company Number: 200314389US

PATIENT
  Age: 72 Year
  Sex: Female

DRUGS (3)
  1. LOVENOX [Suspect]
     Indication: THROMBOSIS PROPHYLAXIS
     Dosage: 60 MG 5XW FEW WEEKS
     Dates: start: 20030301, end: 20030413
  2. ATENOLOL [Concomitant]
  3. WARFARIN SODIUM [Concomitant]

REACTIONS (1)
  - THROMBOSIS [None]
